FAERS Safety Report 16260058 (Version 1)
Quarter: 2019Q2

REPORT INFORMATION
  Report Type: Spontaneous
  Country: US (occurrence: US)
  Receive Date: 20190326
  Receipt Date: 20190326
  Transmission Date: 20190711
  Serious: Yes (Congenital Anomaly)
  Sender: FDA-Public Use
  Company Number: None

PATIENT
  Age: 62 Year
  Sex: Male

DRUGS (1)
  1. ASPIRIN/CITRIC ACID /SODIUM BICARBONATE [Suspect]
     Active Substance: ASPIRIN\CITRIC ACID MONOHYDRATE\SODIUM BICARBONATE
     Indication: SINUSITIS

REACTIONS (3)
  - Lip swelling [None]
  - Anaphylactic reaction [None]
  - Swelling face [None]

NARRATIVE: CASE EVENT DATE: 20190105
